FAERS Safety Report 7430887-X (Version None)
Quarter: 2011Q2

REPORT INFORMATION
  Report Type: 
  Country: None (occurrence: None)
  Receive Date: 20110421
  Receipt Date: 20110331
  Transmission Date: 20111010
  Serious: No
  Sender: FDA-Public Use
  Company Number: US-B.I. PHARMACEUTICALS,INC./RIDGEFIELD-2011-BP-09771BP

PATIENT
  Sex: Male

DRUGS (11)
  1. LASIX [Concomitant]
     Dosage: 40 MG
     Route: 048
  2. TOPROL-XL [Concomitant]
     Indication: HYPERTENSION
     Dosage: 25 MG
     Route: 048
  3. MAALOX [Concomitant]
     Indication: DYSPEPSIA
     Route: 048
  4. JANUVIA [Concomitant]
     Indication: DIABETES MELLITUS
     Route: 048
  5. PRADAXA [Suspect]
     Indication: ATRIAL FIBRILLATION
     Dosage: 300 MG
     Route: 048
     Dates: start: 20110201
  6. ZETIA [Concomitant]
     Indication: BLOOD CHOLESTEROL INCREASED
     Route: 048
  7. OTHER DIABETES MED [Concomitant]
     Indication: DIABETES MELLITUS
     Route: 048
  8. NEXIUM [Concomitant]
     Indication: GASTROOESOPHAGEAL REFLUX DISEASE
     Dosage: 40 MG
     Route: 048
  9. ACCUPRIL [Concomitant]
     Indication: HYPERTENSION
     Dosage: 40 MG
     Route: 048
  10. CRESTOR [Concomitant]
     Indication: BLOOD CHOLESTEROL INCREASED
     Dosage: 40 MG
     Route: 048
  11. AMARYL [Concomitant]
     Indication: DIABETES MELLITUS
     Route: 048

REACTIONS (6)
  - ABDOMINAL DISCOMFORT [None]
  - FLATULENCE [None]
  - ABDOMINAL DISTENSION [None]
  - ABDOMINAL PAIN UPPER [None]
  - CHEST DISCOMFORT [None]
  - GASTROOESOPHAGEAL REFLUX DISEASE [None]
